FAERS Safety Report 4585939-9 (Version None)
Quarter: 2005Q1

REPORT INFORMATION
  Report Type: 
  Country: None (occurrence: None)
  Receive Date: 20050214
  Receipt Date: 20050208
  Transmission Date: 20050727
  Serious: Yes (Hospitalization)
  Sender: FDA-Public Use
  Company Number: DE9404923JAN2003

PATIENT

DRUGS (2)
  1. SIROLIMUS (SIROLIMUS, SOLUTION, 0) [Suspect]
     Indication: RENAL TRANSPLANT
     Dosage: VARIES, ORAL
     Route: 048
     Dates: start: 20011105, end: 20020608
  2. NORVASC [Concomitant]

REACTIONS (11)
  - ANAEMIA [None]
  - ANGIOPATHY [None]
  - CEREBRAL HAEMORRHAGE [None]
  - COMPLICATIONS OF TRANSPLANT SURGERY [None]
  - CRYPTOGENIC ORGANIZING PNEUMONIA [None]
  - DIALYSIS [None]
  - NEPHROPATHY [None]
  - OEDEMA PERIPHERAL [None]
  - PROTHROMBIN TIME PROLONGED [None]
  - PSORIASIS [None]
  - RENAL FAILURE [None]
